FAERS Safety Report 9914972 (Version 2)
Quarter: 2014Q1

REPORT INFORMATION
  Report Type: Spontaneous
  Country: US (occurrence: US)
  Receive Date: 20140220
  Receipt Date: 20140220
  Transmission Date: 20141002
  Serious: No
  Sender: FDA-Public Use
  Company Number: US-GILEAD-2014-0093096

PATIENT
  Sex: Female

DRUGS (4)
  1. LETAIRIS [Suspect]
     Indication: PRODUCT USED FOR UNKNOWN INDICATION
     Dosage: 5 MG, QD
     Route: 065
     Dates: start: 20131031
  2. LETAIRIS [Suspect]
     Dosage: 5 MG, UNK
     Route: 065
     Dates: start: 20131112
  3. LETAIRIS [Suspect]
     Dosage: 5 MG, QD
     Route: 065
     Dates: start: 20131114
  4. ADCIRCA [Concomitant]
     Route: 065

REACTIONS (3)
  - Malaise [Unknown]
  - Unevaluable event [Unknown]
  - Fluid retention [Unknown]
